FAERS Safety Report 13232597 (Version 1)
Quarter: 2017Q1

REPORT INFORMATION
  Report Type: Spontaneous
  Country: None (occurrence: US)
  Receive Date: 20170214
  Receipt Date: 20170214
  Transmission Date: 20170428
  Serious: No
  Sender: FDA-Public Use
  Company Number: US-MATRIXX INITIATIVES, INC.-1063090

PATIENT
  Age: 70 Year
  Sex: Female
  Weight: 90.46 kg

DRUGS (3)
  1. UNSPECIFIED HYPERTENSION MEDICATION [Concomitant]
  2. UNSPECIFIED HIGH CHOLESTEROL MEDICATION [Concomitant]
     Active Substance: UNSPECIFIED INGREDIENT
  3. ZICAM COLD REMEDY NASAL SWABS (HOMEOPATHICS) [Suspect]
     Active Substance: HOMEOPATHICS\ZINC ACETATE\ZINC GLUCONATE
     Indication: NASOPHARYNGITIS
     Route: 045
     Dates: start: 20161227, end: 20161231

REACTIONS (2)
  - Dysgeusia [None]
  - Anosmia [None]
